FAERS Safety Report 15506993 (Version 1)
Quarter: 2018Q4

REPORT INFORMATION
  Report Type: Spontaneous
  Country: US (occurrence: US)
  Receive Date: 20181016
  Receipt Date: 20181016
  Transmission Date: 20190205
  Serious: No
  Sender: FDA-Public Use
  Company Number: US-MYLANLABS-2018M1071951

PATIENT
  Age: 93 Year
  Sex: Female
  Weight: 68 kg

DRUGS (1)
  1. FENTANYL TRANSDERMAL SYSTEM [Suspect]
     Active Substance: FENTANYL
     Indication: ARTHRITIS
     Dosage: 12 ?G, UNK
     Route: 062

REACTIONS (1)
  - Application site injury [Not Recovered/Not Resolved]

NARRATIVE: CASE EVENT DATE: 20180927
